FAERS Safety Report 18252179 (Version 2)
Quarter: 2020Q4

REPORT INFORMATION
  Report Type: Spontaneous
  Country: US (occurrence: US)
  Receive Date: 20200910
  Receipt Date: 20201231
  Transmission Date: 20210113
  Serious: Yes (Other)
  Sender: FDA-Public Use
  Company Number: US-FARMAPROD-202005-0652

PATIENT
  Sex: Female

DRUGS (26)
  1. ADVAIR DISKUS [Concomitant]
     Active Substance: FLUTICASONE PROPIONATE\SALMETEROL XINAFOATE
     Dosage: 100-50 MCG BLISTER WITH DEVICE
  2. AMLODIPINE BESYLATE. [Concomitant]
     Active Substance: AMLODIPINE BESYLATE
  3. SKELAXIN [Concomitant]
     Active Substance: METAXALONE
  4. LEVOXYL [Concomitant]
     Active Substance: LEVOTHYROXINE SODIUM
  5. ALDACTONE [Concomitant]
     Active Substance: SPIRONOLACTONE
  6. SALAGEN [Concomitant]
     Active Substance: PILOCARPINE HYDROCHLORIDE
  7. GENTEAL TEARS (MILD) [Concomitant]
     Active Substance: DEXTRAN 70\HYPROMELLOSE 2910 (4000 MPA.S)
  8. VITAMIN D3 [Concomitant]
     Active Substance: CHOLECALCIFEROL
  9. MYRBETRIQ [Concomitant]
     Active Substance: MIRABEGRON
     Dosage: EXTENDED RELEASE TABLET
  10. ZOFRAN [Concomitant]
     Active Substance: ONDANSETRON HYDROCHLORIDE
  11. TYLENOL [Concomitant]
     Active Substance: ACETAMINOPHEN
  12. MULTIVITAMINES [Concomitant]
     Active Substance: VITAMINS
  13. LASIX [Concomitant]
     Active Substance: FUROSEMIDE
  14. ALBUTEROL SULFATE. [Concomitant]
     Active Substance: ALBUTEROL SULFATE
  15. PATADAY [Concomitant]
     Active Substance: OLOPATADINE HYDROCHLORIDE
  16. CALCIUM/VITAMINE D3 [Concomitant]
     Dosage: 600-500 MG EXTENDED RELEASE TABLET
  17. OXERVATE [Suspect]
     Active Substance: CENEGERMIN-BKBJ
     Indication: NEUROTROPHIC KERATOPATHY
     Route: 047
     Dates: start: 20200402
  18. HYDROXYCHLOROQUINE [Concomitant]
     Active Substance: HYDROXYCHLOROQUINE
  19. LYRICA [Concomitant]
     Active Substance: PREGABALIN
  20. COREG [Concomitant]
     Active Substance: CARVEDILOL
  21. AMITIZA [Concomitant]
     Active Substance: LUBIPROSTONE
  22. ECOTRIN [Concomitant]
     Active Substance: ASPIRIN
     Dosage: DELAYED RELEASE TABLET
  23. SINGULAIR [Concomitant]
     Active Substance: MONTELUKAST SODIUM
  24. PANTOPRAZOLE SODIUM. [Concomitant]
     Active Substance: PANTOPRAZOLE SODIUM
     Dosage: DELAYED RELEASE TABLET
  25. CARAFATE [Concomitant]
     Active Substance: SUCRALFATE
  26. SYSTANE (HYPROMELLOSE 2910 (4000 MPA.S)) [Concomitant]
     Active Substance: HYPROMELLOSE 2910 (4000 MPA.S)
     Dosage: 0.3%-0.4%

REACTIONS (3)
  - Ocular discomfort [Unknown]
  - Eye pain [Unknown]
  - Cardiac failure congestive [Unknown]
